FAERS Safety Report 5511633-3 (Version None)
Quarter: 2007Q4

REPORT INFORMATION
  Report Type: 
  Country: None (occurrence: None)
  Receive Date: 20071109
  Receipt Date: 20071031
  Transmission Date: 20080405
  Serious: Yes (Other)
  Sender: FDA-Public Use
  Company Number: US-PFIZER INC-2006007527

PATIENT
  Sex: Male

DRUGS (1)
  1. GEODON [Suspect]
     Indication: SCHIZOPHRENIA, PARANOID TYPE

REACTIONS (15)
  - AGITATION [None]
  - ASTHENIA [None]
  - COUGH [None]
  - DIZZINESS [None]
  - DRUG INEFFECTIVE [None]
  - DRY MOUTH [None]
  - DRY THROAT [None]
  - GINGIVAL DISORDER [None]
  - HAEMATEMESIS [None]
  - HAEMOPTYSIS [None]
  - INSOMNIA [None]
  - NASOPHARYNGITIS [None]
  - PARALYSIS [None]
  - PYREXIA [None]
  - VOMITING [None]
